FAERS Safety Report 8677495 (Version 7)
Quarter: 2013Q4

REPORT INFORMATION
  Report Type: Spontaneous
  Country: US (occurrence: US)
  Receive Date: 20120723
  Receipt Date: 20131219
  Transmission Date: 20140711
  Serious: Yes (Other)
  Sender: FDA-Public Use
  Company Number: US-PFIZER INC-2012173107

PATIENT
  Age: 66 Year
  Sex: Female
  Weight: 61.22 kg

DRUGS (4)
  1. XALATAN [Suspect]
     Indication: GLAUCOMA
     Dosage: 1 GTT (IN BOTH EYES), DAILY
     Route: 047
     Dates: start: 1995
  2. LATANOPROST [Suspect]
     Indication: GLAUCOMA
     Dosage: 1 GTT (IN BOTH EYES), 1X/DAY
     Route: 047
     Dates: start: 1995, end: 1995
  3. LUMIGAN [Suspect]
     Dosage: 1 DROP, 1X/DAY HS
     Dates: start: 20120621, end: 20121001
  4. TIMOLOL [Concomitant]
     Dosage: UNK,1X/DAY

REACTIONS (16)
  - Breast cancer female [Unknown]
  - Myocardial infarction [Unknown]
  - Malaise [Unknown]
  - Arthropathy [Unknown]
  - Intraocular pressure increased [Unknown]
  - Eye colour change [Unknown]
  - Asthenia [Unknown]
  - Weight increased [Unknown]
  - Drug hypersensitivity [Unknown]
  - Hypersensitivity [Unknown]
  - Eye irritation [Recovered/Resolved]
  - Ocular hyperaemia [Unknown]
  - Eye swelling [Unknown]
  - Photophobia [Unknown]
  - Erythema of eyelid [Recovered/Resolved]
  - Eye inflammation [Recovered/Resolved]
